FAERS Safety Report 24107113 (Version 2)
Quarter: 2024Q4

REPORT INFORMATION
  Report Type: Report from Study
  Country: US (occurrence: US)
  Receive Date: 20240718
  Receipt Date: 20241216
  Transmission Date: 20250115
  Serious: Yes (Other)
  Sender: ABBVIE
  Company Number: US-ABBVIE-5841528

PATIENT
  Sex: Male

DRUGS (1)
  1. HUMIRA [Suspect]
     Active Substance: ADALIMUMAB
     Indication: Crohn^s disease
     Dosage: CITRATE FREE
     Route: 058
     Dates: start: 20200730

REACTIONS (11)
  - Loss of consciousness [Unknown]
  - Serum ferritin decreased [Not Recovered/Not Resolved]
  - Heart rate increased [Unknown]
  - Blood iron decreased [Not Recovered/Not Resolved]
  - Hypertension [Unknown]
  - Dizziness [Unknown]
  - Fall [Unknown]
  - Skull fracture [Unknown]
  - Malabsorption [Not Recovered/Not Resolved]
  - Nausea [Unknown]
  - Autonomic nervous system imbalance [Unknown]
